FAERS Safety Report 5853235-5 (Version None)
Quarter: 2008Q3

REPORT INFORMATION
  Report Type: 
  Country: None (occurrence: None)
  Receive Date: 20080820
  Receipt Date: 20080808
  Transmission Date: 20090109
  Serious: Yes (Hospitalization)
  Sender: FDA-Public Use
  Company Number: OMPQ-PR-0808S-0579

PATIENT
  Age: 45 Year
  Sex: Female

DRUGS (1)
  1. OMNIPAQUE 140 [Suspect]
     Indication: DRUG USE FOR UNKNOWN INDICATION
     Dosage: 125 ML, SINGLE DOSE, I.V.
     Route: 042
     Dates: start: 20080808, end: 20080808

REACTIONS (1)
  - MYOCARDIAL INFARCTION [None]
